FAERS Safety Report 19192083 (Version 2)
Quarter: 2021Q2

REPORT INFORMATION
  Report Type: Spontaneous
  Country: US (occurrence: US)
  Receive Date: 20210428
  Receipt Date: 20210526
  Transmission Date: 20210717
  Serious: No
  Sender: FDA-Public Use
  Company Number: US-BAUSCH-BL-2021-010877

PATIENT
  Age: 78 Year
  Sex: Male
  Weight: 72.64 kg

DRUGS (2)
  1. OPCON?A [Suspect]
     Active Substance: NAPHAZOLINE HYDROCHLORIDE\PHENIRAMINE MALEATE
     Indication: EYE ALLERGY
     Dosage: 1 DROP INEACH EYE, SEVERAL MONTHS AGO AND A COUPLE WEEKS AGO
     Route: 047
  2. REFRESH LUBRICANT EYE DROPS [Concomitant]
     Indication: PRODUCT USED FOR UNKNOWN INDICATION

REACTIONS (1)
  - Eye irritation [Recovered/Resolved]
